FAERS Safety Report 12247219 (Version 3)
Quarter: 2016Q2

REPORT INFORMATION
  Report Type: Report from Study
  Country: VN (occurrence: VN)
  Receive Date: 20160407
  Receipt Date: 20160428
  Transmission Date: 20160815
  Serious: Yes (Hospitalization)
  Sender: FDA-Public Use
  Company Number: VN-ASTRAZENECA-2016SE32818

PATIENT
  Age: 49 Year
  Sex: Female

DRUGS (18)
  1. KETOSTERIL [Concomitant]
     Active Substance: AMINO ACIDS
     Indication: RENAL FAILURE
     Dosage: 3 DF TID
     Route: 048
     Dates: start: 20151209
  2. AZD9941 CODE NOT BROKEN [Suspect]
     Active Substance: ROXADUSTAT
     Indication: NEPHROGENIC ANAEMIA
     Route: 048
     Dates: start: 20160308, end: 20160319
  3. NATRI HYDROCARBONAT [Suspect]
     Active Substance: SODIUM BICARBONATE
     Indication: IRON DEFICIENCY
     Route: 048
     Dates: start: 20160323, end: 20160325
  4. FEBUXOSTAT. [Concomitant]
     Active Substance: FEBUXOSTAT
     Indication: BLOOD URIC ACID INCREASED
     Dosage: 1 TAB BID
     Route: 048
     Dates: start: 20151209
  5. PLENDIL PLUS [Concomitant]
     Indication: HYPERTENSION
     Dosage: 1 TAB DAILY
     Route: 048
     Dates: start: 20160111
  6. BETALOC ZOK [Suspect]
     Active Substance: METOPROLOL SUCCINATE
     Indication: HYPERTENSION
     Route: 048
     Dates: start: 20160323, end: 20160401
  7. FUROSEMIDE. [Concomitant]
     Active Substance: FUROSEMIDE
     Indication: HYPERTENSION
     Route: 048
     Dates: start: 20151209
  8. AZD9941 CODE NOT BROKEN [Suspect]
     Active Substance: ROXADUSTAT
     Indication: NEPHROGENIC ANAEMIA
     Route: 048
     Dates: start: 20160209, end: 20160220
  9. KETOSTERIL [Concomitant]
     Active Substance: AMINO ACIDS
     Indication: RENAL FAILURE
     Dosage: 2 TAB BID
     Route: 048
     Dates: start: 20151209
  10. VENOFER [Concomitant]
     Active Substance: IRON SUCROSE
     Indication: MINERAL SUPPLEMENTATION
     Route: 042
     Dates: start: 20160323, end: 20160328
  11. AZD9941 CODE NOT BROKEN [Suspect]
     Active Substance: ROXADUSTAT
     Indication: NEPHROGENIC ANAEMIA
     Route: 048
     Dates: start: 20160321
  12. ADALAT CC [Concomitant]
     Active Substance: NIFEDIPINE
     Indication: HYPERTENSION
     Route: 048
     Dates: start: 20151209
  13. AZD9941 CODE NOT BROKEN [Suspect]
     Active Substance: ROXADUSTAT
     Indication: NEPHROGENIC ANAEMIA
     Route: 048
     Dates: start: 20151229, end: 20160109
  14. AZD9941 CODE NOT BROKEN [Suspect]
     Active Substance: ROXADUSTAT
     Indication: NEPHROGENIC ANAEMIA
     Route: 048
     Dates: start: 20160112, end: 20160123
  15. AZD9941 CODE NOT BROKEN [Suspect]
     Active Substance: ROXADUSTAT
     Indication: NEPHROGENIC ANAEMIA
     Route: 048
     Dates: start: 20160126, end: 20160206
  16. AZD9941 CODE NOT BROKEN [Suspect]
     Active Substance: ROXADUSTAT
     Indication: NEPHROGENIC ANAEMIA
     Route: 048
     Dates: start: 20160223, end: 20160305
  17. NATRI CHLORIDE [Suspect]
     Active Substance: SODIUM CHLORIDE
     Indication: IRON DEFICIENCY
     Route: 042
     Dates: start: 20160323, end: 20160328
  18. HYOSCINE BUTYLBROMIDE [Concomitant]
     Active Substance: BUTYLSCOPOLAMINE
     Indication: CHRONIC KIDNEY DISEASE
     Route: 030
     Dates: start: 20160323, end: 20160323

REACTIONS (1)
  - End stage renal disease [Recovered/Resolved]

NARRATIVE: CASE EVENT DATE: 20160323
